FAERS Safety Report 7678152-X (Version None)
Quarter: 2011Q3

REPORT INFORMATION
  Report Type: 
  Country: None (occurrence: None)
  Receive Date: 20110811
  Receipt Date: 20110801
  Transmission Date: 20111222
  Serious: Yes (Hospitalization)
  Sender: FDA-Public Use
  Company Number: US-JNJFOC-20110204123

PATIENT
  Sex: Male
  Weight: 33 kg

DRUGS (4)
  1. METRONIDAZOLE [Concomitant]
     Route: 065
  2. REMICADE [Suspect]
     Indication: CROHN'S DISEASE
     Dosage: 7 DOSES TOTAL
     Route: 042
     Dates: start: 20090109, end: 20090925
  3. HUMIRA [Concomitant]
  4. MEROPENEM [Concomitant]
     Route: 065

REACTIONS (1)
  - PANCREATITIS [None]
